FAERS Safety Report 7310449-5 (Version None)
Quarter: 2011Q1

REPORT INFORMATION
  Report Type: 
  Country: None (occurrence: None)
  Receive Date: 20110224
  Receipt Date: 20100826
  Transmission Date: 20110831
  Serious: No
  Sender: FDA-Public Use
  Company Number: US-BRISTOL-MYERS SQUIBB COMPANY-15256944

PATIENT
  Age: 67 Year
  Sex: Male
  Weight: 177 kg

DRUGS (2)
  1. METFORMIN HCL [Suspect]
     Indication: TYPE 2 DIABETES MELLITUS
  2. LANTUS [Suspect]
     Indication: TYPE 2 DIABETES MELLITUS
     Dosage: 1 DF: 80 UNITS(2 PER DAY),40 UNITS(2 PER DAY),80UNITS DAILY 100 IU/ML
     Route: 058

REACTIONS (1)
  - BLOOD GLUCOSE INCREASED [None]
